FAERS Safety Report 10232411 (Version 5)
Quarter: 2016Q1

REPORT INFORMATION
  Report Type: Spontaneous
  Country: US (occurrence: None)
  Receive Date: 20140610
  Receipt Date: 20160218
  Transmission Date: 20160525
  Serious: Yes (Death, Life-Threatening, Hospitalization, Other)
  Sender: FDA-Public Use
  Company Number: ADR-2014-00976

PATIENT
  Age: 68 Year
  Sex: Male

DRUGS (2)
  1. BACLOFEN INTRATHECAL [Suspect]
     Active Substance: BACLOFEN
     Indication: SPINAL PAIN
  2. MORPHINE INTRATHECAL [Suspect]
     Active Substance: MORPHINE
     Indication: SPINAL PAIN

REACTIONS (9)
  - Paralysis [None]
  - Infection [None]
  - Spinal cord infection [None]
  - Purulence [None]
  - Dyspnoea [None]
  - Cardiac disorder [None]
  - Medical device site infection [None]
  - Pulmonary embolism [None]
  - Therapeutic response unexpected [None]
